FAERS Safety Report 8027505-9 (Version None)
Quarter: 2012Q1

REPORT INFORMATION
  Report Type: 
  Country: None (occurrence: None)
  Receive Date: 20120104
  Receipt Date: 20111220
  Transmission Date: 20120608
  Serious: Yes (Other)
  Sender: FDA-Public Use
  Company Number: 2011AP003145

PATIENT
  Age: 37 Year
  Sex: Female

DRUGS (1)
  1. CITALOPRAM HYDROBROMIDE [Suspect]
     Indication: DEPRESSION
     Dosage: 20 MG
     Route: 048
     Dates: start: 20100415, end: 20111128

REACTIONS (3)
  - INFLUENZA LIKE ILLNESS [None]
  - MALAISE [None]
  - HEPATITIS [None]
